FAERS Safety Report 4360430-3 (Version None)
Quarter: 2004Q2

REPORT INFORMATION
  Report Type: 
  Country: None (occurrence: None)
  Receive Date: 20040514
  Receipt Date: 20040506
  Transmission Date: 20050107
  Serious: Yes (Death)
  Sender: FDA-Public Use
  Company Number: 2004-05-0357

PATIENT
  Age: 69 Year
  Sex: Male

DRUGS (1)
  1. INTRON A (INTERFERON ALFA-2B RECOMBINANT) INJECTABLE SOLUTION [Suspect]

REACTIONS (1)
  - DEATH [None]
